FAERS Safety Report 11704656 (Version 3)
Quarter: 2015Q4

REPORT INFORMATION
  Report Type: Report from Study
  Country: CZ (occurrence: CZ)
  Receive Date: 20151106
  Receipt Date: 20151118
  Transmission Date: 20160304
  Serious: Yes (Death)
  Sender: FDA-Public Use
  Company Number: CZ-ABBVIE-15P-217-1493033-00

PATIENT
  Age: 54 Year
  Sex: Male
  Weight: 59 kg

DRUGS (1)
  1. DUODOPA [Suspect]
     Active Substance: CARBIDOPA\LEVODOPA
     Indication: PARKINSON^S DISEASE
     Dosage: MD:15.5 ML;MAINTENANCE DOSE: 7.2ML; ED: 3 ML
     Route: 050
     Dates: start: 20121114, end: 20151027

REACTIONS (2)
  - Respiratory failure [Fatal]
  - Lung abscess [Fatal]

NARRATIVE: CASE EVENT DATE: 20151006
